FAERS Safety Report 14159663 (Version 1)
Quarter: 2017Q4

REPORT INFORMATION
  Report Type: Report from Study
  Country: US (occurrence: US)
  Receive Date: 20171103
  Receipt Date: 20171103
  Transmission Date: 20180321
  Serious: Yes (Death)
  Sender: FDA-Public Use
  Company Number: US-ACTELION-A-NJ2016-138291

PATIENT
  Age: 78 Year
  Sex: Female
  Weight: 75.74 kg

DRUGS (2)
  1. OPSUMIT [Suspect]
     Active Substance: MACITENTAN
     Indication: PULMONARY HYPERTENSION
     Dosage: 10 MG, QD
     Route: 048
     Dates: start: 20160614
  2. AMLODIPINE [Concomitant]
     Active Substance: AMLODIPINE BESYLATE

REACTIONS (21)
  - Blood potassium decreased [Unknown]
  - Rhinitis [Unknown]
  - Oxygen saturation decreased [Unknown]
  - Exercise tolerance decreased [Unknown]
  - Death [Fatal]
  - Skin disorder [Unknown]
  - Dyspnoea [Unknown]
  - Headache [Unknown]
  - Feeling abnormal [Unknown]
  - Pneumonia [Unknown]
  - Dizziness [Unknown]
  - Muscle spasms [Unknown]
  - Presyncope [Unknown]
  - Influenza [Unknown]
  - Stomatitis [Unknown]
  - Cystitis [Unknown]
  - Burning sensation [Unknown]
  - Fungal infection [Unknown]
  - Hypotension [Unknown]
  - Sinusitis [Unknown]
  - Pulmonary hypertension [Unknown]

NARRATIVE: CASE EVENT DATE: 20171008
